FAERS Safety Report 4590028-3 (Version None)
Quarter: 2005Q1

REPORT INFORMATION
  Report Type: 
  Country: None (occurrence: None)
  Receive Date: 20050216
  Receipt Date: 20050131
  Transmission Date: 20050727
  Serious: Yes (Death)
  Sender: FDA-Public Use
  Company Number: B0349820A

PATIENT
  Age: 43 Year
  Sex: Male

DRUGS (3)
  1. WELLBUTRIN [Suspect]
     Dosage: ORAL
     Route: 048
  2. ETHANOL (ALCOHOL) [Suspect]
     Dosage: ORAL
     Route: 048
  3. SERTRALINE HCL [Suspect]
     Dosage: ORAL
     Route: 048

REACTIONS (11)
  - BLOOD ETHANOL INCREASED [None]
  - BLOOD PH DECREASED [None]
  - BLOOD PRESSURE DECREASED [None]
  - COMPLETED SUICIDE [None]
  - CONVULSION [None]
  - DRUG LEVEL ABOVE THERAPEUTIC [None]
  - DRUG TOXICITY [None]
  - HEART RATE INCREASED [None]
  - HYPOXIC ENCEPHALOPATHY [None]
  - INTENTIONAL SELF-INJURY [None]
  - MYOCLONUS [None]
